FAERS Safety Report 9889380 (Version 3)
Quarter: 2014Q3

REPORT INFORMATION
  Report Type: Report from Study
  Country: US (occurrence: US)
  Receive Date: 20140211
  Receipt Date: 20140930
  Transmission Date: 20150326
  Serious: No
  Sender: FDA-Public Use
  Company Number: US-ABBVIE-12P-163-0950306-00

PATIENT
  Age: 26 Year
  Sex: Female

DRUGS (3)
  1. NORVIR [Suspect]
     Active Substance: RITONAVIR
     Indication: ANTIRETROVIRAL THERAPY
     Dosage: NOT TAKING AT CONCEPTION
     Route: 048
     Dates: start: 20111024
  2. REYATAZ [Suspect]
     Active Substance: ATAZANAVIR SULFATE
     Indication: ANTIRETROVIRAL THERAPY
     Dosage: NOT TAKING AT CONCEPTION
     Route: 048
     Dates: start: 20111024
  3. TRUVADA [Suspect]
     Active Substance: EMTRICITABINE\TENOFOVIR DISOPROXIL FUMARATE
     Indication: ANTIRETROVIRAL THERAPY
     Dosage: NOT TAKING AT CONCEPTION
     Route: 048
     Dates: start: 20111024

REACTIONS (1)
  - Placenta praevia [Recovered/Resolved]

NARRATIVE: CASE EVENT DATE: 20111208
